FAERS Safety Report 5898885-5 (Version None)
Quarter: 2008Q3

REPORT INFORMATION
  Report Type: 
  Country: None (occurrence: None)
  Receive Date: 20080925
  Receipt Date: 20080916
  Transmission Date: 20090109
  Serious: Yes (Hospitalization)
  Sender: FDA-Public Use
  Company Number: GB-JNJFOC-20050106494

PATIENT
  Age: 15 Month
  Sex: Female

DRUGS (4)
  1. IBUPROFEN [Suspect]
     Indication: PYREXIA
     Dosage: 5 MG/KG, 1 IN 1 DAY, ORAL
     Route: 048
  2. ACETAMINOPHEN [Interacting]
     Route: 048
  3. ACETAMINOPHEN [Interacting]
     Indication: PYREXIA
     Dosage: 15 MG/KG, 1 IN 1 DAY, ORAL
     Route: 048
  4. CEFUROXIME [Concomitant]
     Indication: LOBAR PNEUMONIA
     Route: 042

REACTIONS (3)
  - DRUG INTERACTION [None]
  - HYPOTHERMIA [None]
  - SEPSIS [None]
